FAERS Safety Report 15589476 (Version 5)
Quarter: 2020Q4

REPORT INFORMATION
  Report Type: Report from Study
  Country: HR (occurrence: HR)
  Receive Date: 20181106
  Receipt Date: 20201124
  Transmission Date: 20210113
  Serious: Yes (Other)
  Sender: FDA-Public Use
  Company Number: HR-ROCHE-2201513

PATIENT
  Age: 65 Year
  Sex: Male
  Weight: 116 kg

DRUGS (54)
  1. LEVOTHYROXINE. [Concomitant]
     Active Substance: LEVOTHYROXINE
     Route: 048
     Dates: start: 20200227, end: 20200317
  2. RAMIPRIL. [Concomitant]
     Active Substance: RAMIPRIL
     Route: 048
     Dates: start: 20190618
  3. AMOXICILLIN. [Concomitant]
     Active Substance: AMOXICILLIN
     Indication: FOLLICULITIS
     Route: 048
     Dates: start: 20181022
  4. AMLODIPINE [Concomitant]
     Active Substance: AMLODIPINE BESYLATE
     Indication: HYPERTENSION
     Route: 048
     Dates: start: 20190301, end: 20190617
  5. PREDNISONE. [Concomitant]
     Active Substance: PREDNISONE
     Route: 048
     Dates: start: 20190404, end: 20190408
  6. PREDNISONE. [Concomitant]
     Active Substance: PREDNISONE
     Route: 048
     Dates: start: 20190509, end: 20190513
  7. AZITHROMYCIN ANHYDROUS. [Concomitant]
     Active Substance: AZITHROMYCIN ANHYDROUS
     Indication: CHRONIC OBSTRUCTIVE PULMONARY DISEASE
     Route: 048
     Dates: start: 20180621, end: 20180623
  8. SULFAMETHOXAZOLE [Concomitant]
     Active Substance: SULFAMETHOXAZOLE
     Route: 048
     Dates: start: 20190329, end: 20190609
  9. MAXITROL [Concomitant]
     Active Substance: DEXAMETHASONE\NEOMYCIN SULFATE\POLYMYXIN B SULFATE
     Indication: HORDEOLUM
     Route: 061
     Dates: start: 20190519, end: 20190526
  10. DESLORATADINE. [Concomitant]
     Active Substance: DESLORATADINE
     Indication: URTICARIA
     Route: 048
     Dates: start: 20190612, end: 20190615
  11. DIMETINDENE [Concomitant]
     Active Substance: DIMETHINDENE
     Indication: URTICARIA
     Dosage: 1 MG/G
     Route: 061
     Dates: start: 20190612, end: 20190615
  12. ALPRAZOLAM. [Concomitant]
     Active Substance: ALPRAZOLAM
     Route: 048
     Dates: start: 20181010
  13. PREDNISONE. [Concomitant]
     Active Substance: PREDNISONE
     Route: 048
     Dates: start: 20190419, end: 20190423
  14. PREDNISONE. [Concomitant]
     Active Substance: PREDNISONE
     Route: 048
     Dates: start: 20190504, end: 20190508
  15. BETAMETASONE [Concomitant]
     Active Substance: BETAMETHASONE
     Indication: DERMATITIS CONTACT
     Route: 061
     Dates: start: 20190708
  16. ATEZOLIZUMAB. [Suspect]
     Active Substance: ATEZOLIZUMAB
     Indication: MALIGNANT URINARY TRACT NEOPLASM
     Dosage: MOST RECENT DOSE OF ATEZOLIZUMAB (1200 MG) PRIOR TO ONSET OF HYPERGLYCAEMIA 24/SEP/2018
     Route: 042
     Dates: start: 20170616
  17. RAMIPRIL. [Concomitant]
     Active Substance: RAMIPRIL
     Route: 048
     Dates: start: 20190311, end: 20190617
  18. PREDNISONE. [Concomitant]
     Active Substance: PREDNISONE
     Route: 048
     Dates: start: 20190531, end: 20190604
  19. TRIMETHOPRIM. [Concomitant]
     Active Substance: TRIMETHOPRIM
     Route: 048
     Dates: start: 20190329, end: 20190609
  20. ATEZOLIZUMAB. [Suspect]
     Active Substance: ATEZOLIZUMAB
     Route: 042
     Dates: start: 20181025
  21. TRAMADOL HYDROCHLORIDE. [Concomitant]
     Active Substance: TRAMADOL HYDROCHLORIDE
     Indication: OSTEOARTHRITIS
     Route: 048
     Dates: start: 20171030
  22. RAMIPRIL. [Concomitant]
     Active Substance: RAMIPRIL
     Indication: HYPERTENSION
     Route: 048
     Dates: start: 20171109, end: 20181014
  23. CLINDAMYCIN. [Concomitant]
     Active Substance: CLINDAMYCIN
     Indication: FOLLICULITIS
     Route: 061
     Dates: start: 20181022
  24. AMOXICILLIN/CLAVULANIC ACID [Concomitant]
     Active Substance: AMOXICILLIN\CLAVULANIC ACID
     Route: 048
     Dates: start: 20190318, end: 20190325
  25. AZITHROMYCIN ANHYDROUS. [Concomitant]
     Active Substance: AZITHROMYCIN ANHYDROUS
     Indication: PNEUMONIA
     Route: 048
     Dates: start: 20170701, end: 20170703
  26. LEVOTHYROXINE. [Concomitant]
     Active Substance: LEVOTHYROXINE
     Indication: HYPOTHYROIDISM
     Route: 048
  27. CICLESONIDE [Concomitant]
     Active Substance: CICLESONIDE
     Route: 055
     Dates: start: 20171128, end: 20181015
  28. SALBUTAMOL [Concomitant]
     Active Substance: ALBUTEROL
     Route: 055
     Dates: start: 20171128, end: 20181015
  29. INFLUVAC TETRA [Concomitant]
     Active Substance: INFLUENZA VIRUS VACCINE QUADRIVALENT TYPE A+B
     Route: 058
     Dates: start: 20201026, end: 20201026
  30. PARACETAMOL [Concomitant]
     Active Substance: ACETAMINOPHEN
     Route: 048
     Dates: start: 20171030
  31. AMOXICILLIN/CLAVULANIC ACID [Concomitant]
     Active Substance: AMOXICILLIN\CLAVULANIC ACID
     Indication: PNEUMONIA
     Route: 048
     Dates: start: 20170701, end: 20170707
  32. PREDNISONE. [Concomitant]
     Active Substance: PREDNISONE
     Route: 048
     Dates: start: 20190409, end: 20190413
  33. PREDNISONE. [Concomitant]
     Active Substance: PREDNISONE
     Route: 048
     Dates: start: 20190424, end: 20190428
  34. PREDNISONE. [Concomitant]
     Active Substance: PREDNISONE
     Route: 048
     Dates: start: 20190429, end: 20190503
  35. PREDNISONE. [Concomitant]
     Active Substance: PREDNISONE
     Route: 048
     Dates: start: 20190514, end: 20190518
  36. PREDNISONE. [Concomitant]
     Active Substance: PREDNISONE
     Route: 048
     Dates: start: 20190519, end: 20190523
  37. PREDNISONE. [Concomitant]
     Active Substance: PREDNISONE
     Route: 048
     Dates: start: 20190524, end: 20190528
  38. AZITHROMYCIN ANHYDROUS. [Concomitant]
     Active Substance: AZITHROMYCIN ANHYDROUS
     Indication: OROPHARYNGEAL PAIN
     Route: 048
     Dates: start: 20190318, end: 20190320
  39. AZITHROMYCIN ANHYDROUS. [Concomitant]
     Active Substance: AZITHROMYCIN ANHYDROUS
     Route: 048
     Dates: start: 20200819, end: 20200821
  40. LOPERAMIDE [Concomitant]
     Active Substance: LOPERAMIDE
     Indication: CAMPYLOBACTER GASTROENTERITIS
     Route: 048
     Dates: start: 20190627, end: 20190702
  41. SPIRIVA [Concomitant]
     Active Substance: TIOTROPIUM BROMIDE MONOHYDRATE
     Dosage: POWDER
     Route: 055
     Dates: start: 20180220
  42. KETOPROFEN. [Concomitant]
     Active Substance: KETOPROFEN
     Indication: OSTEOARTHRITIS
     Route: 048
     Dates: start: 20171030, end: 20181015
  43. ZOLPIDEM [Concomitant]
     Active Substance: ZOLPIDEM TARTRATE
     Route: 048
     Dates: start: 20181010
  44. PREDNISONE. [Concomitant]
     Active Substance: PREDNISONE
     Indication: PNEUMONITIS
     Route: 048
     Dates: start: 20190329, end: 20190403
  45. PREDNISONE. [Concomitant]
     Active Substance: PREDNISONE
     Route: 048
     Dates: start: 20190414, end: 20190418
  46. CARBO MEDICINALIS [Concomitant]
     Active Substance: ACTIVATED CHARCOAL
     Indication: CAMPYLOBACTER GASTROENTERITIS
     Route: 048
     Dates: start: 20190627, end: 20190627
  47. MUPIROCIN. [Concomitant]
     Active Substance: MUPIROCIN
     Indication: SEBORRHOEIC KERATOSIS
     Route: 061
     Dates: start: 20200128, end: 20200204
  48. SPIRIVA [Concomitant]
     Active Substance: TIOTROPIUM BROMIDE MONOHYDRATE
     Dosage: POWDER
     Route: 055
     Dates: end: 20171128
  49. LEVOTHYROXINE. [Concomitant]
     Active Substance: LEVOTHYROXINE
     Route: 048
     Dates: start: 20200318
  50. RAMIPRIL. [Concomitant]
     Active Substance: RAMIPRIL
     Dosage: HALF TABLET ONCE PER DAY
     Route: 048
     Dates: start: 20181015
  51. DOXYCYCLINE. [Concomitant]
     Active Substance: DOXYCYCLINE
     Indication: FOLLICULITIS
     Route: 048
     Dates: start: 20181030, end: 20181119
  52. PREDNISONE. [Concomitant]
     Active Substance: PREDNISONE
     Route: 048
     Dates: start: 20190329, end: 20190609
  53. PREDNISONE. [Concomitant]
     Active Substance: PREDNISONE
     Route: 048
     Dates: start: 20190605, end: 20190609
  54. PREGABALIN. [Concomitant]
     Active Substance: PREGABALIN
     Indication: PERIPHERAL SENSORIMOTOR NEUROPATHY
     Route: 048
     Dates: start: 20191020

REACTIONS (1)
  - Type 2 diabetes mellitus [Not Recovered/Not Resolved]

NARRATIVE: CASE EVENT DATE: 20181025
